FAERS Safety Report 8145136-7 (Version None)
Quarter: 2012Q1

REPORT INFORMATION
  Report Type: 
  Country: None (occurrence: None)
  Receive Date: 20120217
  Receipt Date: 20120213
  Transmission Date: 20120608
  Serious: Yes (Other)
  Sender: FDA-Public Use
  Company Number: PHHY2012CA013242

PATIENT
  Sex: Female

DRUGS (2)
  1. CHEMOTHERAPEUTICS [Concomitant]
  2. EXJADE [Suspect]
     Indication: THALASSAEMIA
     Dosage: 2000 MG, UNK
     Route: 048
     Dates: start: 20100101, end: 20110101

REACTIONS (1)
  - LYMPHOMA [None]
